FAERS Safety Report 8563625-8 (Version None)
Quarter: 2012Q3

REPORT INFORMATION
  Report Type: 
  Country: None (occurrence: None)
  Receive Date: 20120803
  Receipt Date: 20120724
  Transmission Date: 20120928
  Serious: Yes (Hospitalization, Other)
  Sender: FDA-Public Use
  Company Number: ES-BIOGENIDEC-2012BI021368

PATIENT
  Age: 39 Year
  Sex: Female

DRUGS (2)
  1. TYSABRI [Suspect]
     Indication: MULTIPLE SCLEROSIS
     Route: 042
     Dates: start: 20080409, end: 20110713
  2. TYSABRI [Suspect]
     Route: 042
     Dates: end: 20120523

REACTIONS (1)
  - PROGRESSIVE MULTIFOCAL LEUKOENCEPHALOPATHY [None]
